FAERS Safety Report 10173757 (Version 1)
Quarter: 2014Q2

REPORT INFORMATION
  Report Type: Spontaneous
  Country: US (occurrence: US)
  Receive Date: 20140515
  Receipt Date: 20140515
  Transmission Date: 20141212
  Serious: Yes (Other)
  Sender: FDA-Public Use
  Company Number: US-BAYER-2014-068221

PATIENT
  Age: 30 Year
  Sex: Female

DRUGS (1)
  1. GADAVIST [Suspect]
     Indication: NUCLEAR MAGNETIC RESONANCE IMAGING
     Dosage: 10 ML, ONCE, WITH INJECTOR
     Route: 042
     Dates: start: 20140429, end: 20140429

REACTIONS (2)
  - Otorrhoea [Recovered/Resolved]
  - Rhinorrhoea [Recovered/Resolved]
